FAERS Safety Report 4584859-3 (Version None)
Quarter: 2005Q1

REPORT INFORMATION
  Report Type: 
  Country: None (occurrence: None)
  Receive Date: 20050217
  Receipt Date: 20041101
  Transmission Date: 20050727
  Serious: No
  Sender: FDA-Public Use
  Company Number: US-GLAXOSMITHKLINE-A0532064A

PATIENT
  Sex: Female

DRUGS (3)
  1. WELLBUTRIN XL [Suspect]
     Dosage: 150MG PER DAY
     Route: 048
     Dates: start: 20040920
  2. LEXAPRO [Concomitant]
  3. LITHIUM [Concomitant]

REACTIONS (3)
  - DIZZINESS [None]
  - FEELING HOT AND COLD [None]
  - RASH [None]
